FAERS Safety Report 9107294 (Version 2)
Quarter: 2013Q2

REPORT INFORMATION
  Report Type: Spontaneous
  Country: US (occurrence: US)
  Receive Date: 20130221
  Receipt Date: 20130426
  Transmission Date: 20140414
  Serious: No
  Sender: FDA-Public Use
  Company Number: US-VERTEX PHARMACEUTICALS INC.-2013-002319

PATIENT
  Age: 48 Year
  Sex: Female
  Weight: 71 kg

DRUGS (9)
  1. INCIVEK [Suspect]
     Indication: HEPATITIS C
     Dosage: 750 MG, TID
     Route: 048
     Dates: start: 20130201
  2. PEGASYS [Suspect]
     Indication: HEPATITIS C
     Dosage: 180 ?G, QW
     Route: 058
     Dates: start: 20130201
  3. RIBAVIRIN [Suspect]
     Indication: HEPATITIS C
     Dosage: 600 MG IN AM AND 400 MG IN PM
     Route: 048
     Dates: start: 20130201
  4. ISENTRESS [Concomitant]
     Indication: HIV INFECTION
     Dosage: 400 MG, BID
     Route: 048
  5. TRUVADA [Concomitant]
     Indication: HIV INFECTION
     Dosage: 200/300 TAB DAILY
     Route: 048
  6. DEPO PROVERA [Concomitant]
     Dosage: UNKNOWN DOSE,EVERY 3 MONTHS
     Route: 030
  7. ZOLOFT [Concomitant]
  8. LUNESTA [Concomitant]
  9. XANAX [Concomitant]

REACTIONS (7)
  - Off label use [Unknown]
  - Fatigue [Not Recovered/Not Resolved]
  - Rash erythematous [Recovered/Resolved]
  - Diarrhoea [Not Recovered/Not Resolved]
  - Anal haemorrhage [Not Recovered/Not Resolved]
  - Proctalgia [Not Recovered/Not Resolved]
  - Anal pruritus [Not Recovered/Not Resolved]
